FAERS Safety Report 9069765 (Version 1)
Quarter: 2013Q1

REPORT INFORMATION
  Report Type: Spontaneous
  Country: US (occurrence: US)
  Receive Date: 20130215
  Receipt Date: 20130215
  Transmission Date: 20140127
  Serious: Yes (Other)
  Sender: FDA-Public Use
  Company Number: US-PFIZER INC-2013056190

PATIENT
  Age: 40 Year
  Sex: Male
  Weight: 84.8 kg

DRUGS (1)
  1. XYNTHA [Suspect]
     Indication: FACTOR VIII DEFICIENCY
     Dosage: 25 IU/KG PER INFUSION ON DEMAND

REACTIONS (2)
  - Haemorrhage [Unknown]
  - Joint injury [Unknown]
